FAERS Safety Report 21007225 (Version 1)
Quarter: 2022Q3

REPORT INFORMATION
  Report Type: Report from Study
  Country: EG (occurrence: EG)
  Receive Date: 20220625
  Receipt Date: 20220625
  Transmission Date: 20221027
  Serious: Yes (Hospitalization)
  Sender: FDA-Public Use
  Company Number: EG-NOVARTISPH-NVSC2022EG143825

PATIENT
  Sex: Male

DRUGS (2)
  1. ENTRESTO [Suspect]
     Active Substance: SACUBITRIL\VALSARTAN
     Indication: Cardiac failure
     Dosage: 50 MG, BID
     Route: 048
     Dates: start: 20191101
  2. ENTRESTO [Suspect]
     Active Substance: SACUBITRIL\VALSARTAN
     Dosage: 150 MG, QD (ENTRESTO 50MG ONE TABLET IN THE MORNING AND 100 MG AT NIGHT)
     Route: 048

REACTIONS (1)
  - Hypertension [Unknown]
